FAERS Safety Report 26197278 (Version 1)
Quarter: 2025Q4

REPORT INFORMATION
  Report Type: Spontaneous
  Country: US (occurrence: US)
  Receive Date: 20251224
  Receipt Date: 20251224
  Transmission Date: 20260117
  Serious: No
  Sender: MADRIGAL PHARMACEUTICALS
  Company Number: US-MADRIGAL PHARMACEUTICALS, INC-2025USREZ13831

PATIENT

DRUGS (6)
  1. REZDIFFRA [Suspect]
     Active Substance: RESMETIROM
     Indication: Metabolic dysfunction-associated steatohepatitis
     Dosage: 80 MILLIGRAM, UNKNOWN
     Route: 048
     Dates: start: 202505
  2. FENOFIBRATE [Concomitant]
     Active Substance: FENOFIBRATE
     Indication: Blood triglycerides increased
  3. NP THYROID [Concomitant]
     Active Substance: LEVOTHYROXINE\LIOTHYRONINE
     Indication: Hypothyroidism
     Dosage: NATURAL SUPPLEMENT
  4. PANTOPRAZOLE [Concomitant]
     Active Substance: PANTOPRAZOLE
     Indication: Gastric pH decreased
  5. ALLEGRA [Concomitant]
     Active Substance: FEXOFENADINE HYDROCHLORIDE
     Indication: Allergic respiratory symptom
     Dosage: UNK, PRN
  6. SYNTHROID [Concomitant]
     Active Substance: LEVOTHYROXINE SODIUM
     Indication: Hypothyroidism
     Dosage: STOPPED IT AS IT DID NOT HELP HER WITH THE HYPOTHYROIDISM SYMPTOMS

REACTIONS (6)
  - Fatigue [Unknown]
  - Contusion [Unknown]
  - Thinking abnormal [Unknown]
  - Condition aggravated [Unknown]
  - Poor quality sleep [Unknown]
  - Rash macular [Unknown]

NARRATIVE: CASE EVENT DATE: 20250101
